FAERS Safety Report 7100248-1 (Version None)
Quarter: 2010Q4

REPORT INFORMATION
  Report Type: 
  Country: None (occurrence: None)
  Receive Date: 20101112
  Receipt Date: 20101105
  Transmission Date: 20110411
  Serious: Yes (Other)
  Sender: FDA-Public Use
  Company Number: GB-ABBOTT-10P-167-0683963-00

PATIENT
  Age: 4 Year
  Sex: Female

DRUGS (2)
  1. EPILIM [Suspect]
     Indication: EPILEPSY
     Route: 065
     Dates: start: 20100701, end: 20101001
  2. KEPPRA [Concomitant]
     Indication: PRODUCT USED FOR UNKNOWN INDICATION
     Dates: start: 20100901

REACTIONS (1)
  - GRAND MAL CONVULSION [None]
